FAERS Safety Report 4553661-0 (Version None)
Quarter: 2004Q4

REPORT INFORMATION
  Report Type: 
  Country: None (occurrence: None)
  Receive Date: 20041227
  Receipt Date: 20040428
  Transmission Date: 20050328
  Serious: Yes (Other)
  Sender: FDA-Public Use
  Company Number: US-JNJFOC-20040400790

PATIENT
  Age: 61 Year
  Sex: Male

DRUGS (2)
  1. REOPRO [Suspect]
     Indication: MYOCARDIAL INFARCTION
     Dosage: INTRAVENOUS
     Route: 042
     Dates: start: 20040401
  2. HEPARIN [Concomitant]

REACTIONS (1)
  - THROMBOCYTOPENIA [None]
